FAERS Safety Report 17078349 (Version 1)
Quarter: 2019Q4

REPORT INFORMATION
  Report Type: Report from Study
  Country: US (occurrence: US)
  Receive Date: 20191126
  Receipt Date: 20191126
  Transmission Date: 20200122
  Serious: Yes (Other)
  Sender: FDA-Public Use
  Company Number: US-BIOGEN-2019BI00808959

PATIENT
  Sex: Female
  Weight: 91.25 kg

DRUGS (2)
  1. TECFIDERA [Suspect]
     Active Substance: DIMETHYL FUMARATE
     Dosage: MAINTENANCE DOSE
     Route: 048
  2. TECFIDERA [Suspect]
     Active Substance: DIMETHYL FUMARATE
     Indication: MULTIPLE SCLEROSIS
     Route: 065
     Dates: start: 201909

REACTIONS (4)
  - Paraesthesia [Not Recovered/Not Resolved]
  - Hyperhidrosis [Unknown]
  - Myelitis transverse [Unknown]
  - Hypoaesthesia [Not Recovered/Not Resolved]
